FAERS Safety Report 14535467 (Version 2)
Quarter: 2018Q2

REPORT INFORMATION
  Report Type: Spontaneous
  Country: FR (occurrence: FR)
  Receive Date: 20180215
  Receipt Date: 20180411
  Transmission Date: 20180711
  Serious: Yes (Hospitalization)
  Sender: FDA-Public Use
  Company Number: FR-AUROBINDO-AUR-APL-2018-006977

PATIENT
  Age: 74 Year
  Sex: Female
  Weight: 59 kg

DRUGS (3)
  1. PARACETAMOL [Concomitant]
     Active Substance: ACETAMINOPHEN
     Indication: TOOTHACHE
     Dosage: ()
     Route: 048
     Dates: start: 20171116, end: 20171121
  2. IBUPROFEN. [Suspect]
     Active Substance: IBUPROFEN
     Indication: TOOTHACHE
     Dosage: 1200 MG, UNK
     Route: 048
     Dates: start: 20171121, end: 20171122
  3. AUGMENTIN [Suspect]
     Active Substance: AMOXICILLIN\CLAVULANATE POTASSIUM
     Indication: DENTAL CARE
     Dosage: UNK
     Route: 048
     Dates: start: 20171116, end: 20171121

REACTIONS (10)
  - Dysuria [Recovered/Resolved]
  - Erythema [Recovered/Resolved]
  - Rash [Recovered/Resolved]
  - Agranulocytosis [Recovered/Resolved]
  - Hepatocellular injury [Recovered/Resolved]
  - Acute kidney injury [Recovered/Resolved]
  - Odynophagia [Recovered/Resolved]
  - Fatigue [Recovered/Resolved]
  - Pyrexia [Recovered/Resolved]
  - Oliguria [Recovered/Resolved]

NARRATIVE: CASE EVENT DATE: 20171121
